FAERS Safety Report 17469849 (Version 1)
Quarter: 2020Q1

REPORT INFORMATION
  Report Type: Spontaneous
  Country: AU (occurrence: AU)
  Receive Date: 20200227
  Receipt Date: 20200227
  Transmission Date: 20200409
  Serious: Yes (Hospitalization, Other)
  Sender: FDA-Public Use
  Company Number: AU-MYLANLABS-2020M1004504

PATIENT
  Age: 66 Year
  Sex: Female

DRUGS (2)
  1. CLOZARIL [Suspect]
     Active Substance: CLOZAPINE
     Indication: SCHIZOPHRENIA
     Dosage: 56.25 MILLIGRAM, QD
     Route: 048
     Dates: start: 20191119
  2. CLOZARIL [Suspect]
     Active Substance: CLOZAPINE
     Dosage: 87.5 MILLIGRAM
     Route: 048
     Dates: end: 20200219

REACTIONS (4)
  - Pyrexia [Unknown]
  - Herpes zoster [Unknown]
  - Troponin increased [Unknown]
  - Eosinophil count increased [Not Recovered/Not Resolved]

NARRATIVE: CASE EVENT DATE: 20191230
